FAERS Safety Report 24681043 (Version 2)
Quarter: 2024Q4

REPORT INFORMATION
  Report Type: Spontaneous
  Country: JP (occurrence: JP)
  Receive Date: 20241129
  Receipt Date: 20241205
  Transmission Date: 20250114
  Serious: Yes (Other)
  Sender: BAUSCH AND LOMB
  Company Number: JP-BAUSCHBL-2024BNL038223

PATIENT
  Age: 73 Year
  Sex: Male

DRUGS (5)
  1. CARTEOLOL HYDROCHLORIDE [Suspect]
     Active Substance: CARTEOLOL HYDROCHLORIDE
     Indication: Glaucoma
     Dosage: EYE DROPS, PROLONGED-RELEASE 1 TIME/DAY
     Route: 047
  2. BRIMONIDINE TARTRATE\BRINZOLAMIDE [Suspect]
     Active Substance: BRIMONIDINE TARTRATE\BRINZOLAMIDE
     Indication: Glaucoma
     Dosage: UNK
     Route: 047
  3. BRINZOLAMIDE [Suspect]
     Active Substance: BRINZOLAMIDE
     Indication: Product used for unknown indication
     Dosage: UNK
     Route: 047
  4. REBAMIPIDE [Suspect]
     Active Substance: REBAMIPIDE
     Indication: Product used for unknown indication
     Dosage: UNK
     Route: 047
  5. ALESION [Suspect]
     Active Substance: EPINASTINE HYDROCHLORIDE
     Indication: Product used for unknown indication
     Dosage: UNK
     Route: 047

REACTIONS (8)
  - Glaucoma [Unknown]
  - Ocular hyperaemia [Unknown]
  - Trichiasis [Unknown]
  - Dry eye [Unknown]
  - Foreign body sensation in eyes [Unknown]
  - Abnormal sensation in eye [Unknown]
  - Eye pain [Unknown]
  - Abnormal sensation in eye [Unknown]
